FAERS Safety Report 14274228 (Version 2)
Quarter: 2018Q4

REPORT INFORMATION
  Report Type: Spontaneous
  Country: US (occurrence: US)
  Receive Date: 20171211
  Receipt Date: 20181210
  Transmission Date: 20190204
  Serious: Yes (Hospitalization, Other)
  Sender: FDA-Public Use
  Company Number: US-OTSUKA-2017_002377

PATIENT
  Sex: Female
  Weight: 115.19 kg

DRUGS (3)
  1. ABILIFY [Suspect]
     Active Substance: ARIPIPRAZOLE
     Indication: MAJOR DEPRESSION
     Dosage: 2 MG TO 25 MG, UNK
     Route: 065
     Dates: start: 200411, end: 201503
  2. ABILIFY [Suspect]
     Active Substance: ARIPIPRAZOLE
     Indication: HALLUCINATION, AUDITORY
     Dosage: UNK (RESTARTED DOSE)
     Route: 065
  3. ABILIFY [Suspect]
     Active Substance: ARIPIPRAZOLE
     Indication: ANXIETY

REACTIONS (20)
  - Brain injury [Unknown]
  - Suicidal ideation [Recovered/Resolved]
  - Emotional distress [Unknown]
  - Gambling disorder [Recovered/Resolved]
  - Overdose [Unknown]
  - Fatigue [Unknown]
  - Product use in unapproved indication [Unknown]
  - Skin abrasion [Not Recovered/Not Resolved]
  - Eating disorder [Recovered/Resolved]
  - Asthenia [Unknown]
  - Loss of employment [Unknown]
  - Gastrointestinal surgery [Unknown]
  - Trichotillomania [Not Recovered/Not Resolved]
  - Mental disorder [Unknown]
  - Obsessive-compulsive disorder [Not Recovered/Not Resolved]
  - Weight increased [Unknown]
  - Suicide attempt [Recovered/Resolved]
  - Injury [Unknown]
  - Neuropsychiatric symptoms [Unknown]
  - Economic problem [Unknown]

NARRATIVE: CASE EVENT DATE: 2005
